FAERS Safety Report 5817558-8 (Version None)
Quarter: 2008Q3

REPORT INFORMATION
  Report Type: 
  Country: None (occurrence: None)
  Receive Date: 20080722
  Receipt Date: 20080714
  Transmission Date: 20090109
  Serious: Yes (Other)
  Sender: FDA-Public Use
  Company Number: US-JNJFOC-20080703793

PATIENT
  Age: 41 Year
  Sex: Female
  Weight: 63.5 kg

DRUGS (4)
  1. MONISTAT 7 CREAM COMBO PACK W/PREFAPPL [Suspect]
     Route: 067
  2. MONISTAT 7 CREAM COMBO PACK W/PREFAPPL [Suspect]
     Indication: FUNGAL INFECTION
     Route: 067
  3. MONISTAT 7 CREAM COMBO PACK W/PREFAPPL [Suspect]
     Route: 061
  4. MONISTAT 7 CREAM COMBO PACK W/PREFAPPL [Suspect]
     Route: 061

REACTIONS (5)
  - BACK PAIN [None]
  - BLOOD URINE PRESENT [None]
  - DIZZINESS [None]
  - HEADACHE [None]
  - NAUSEA [None]
